FAERS Safety Report 17091834 (Version 1)
Quarter: 2019Q4

REPORT INFORMATION
  Report Type: Spontaneous
  Country: US (occurrence: US)
  Receive Date: 20191101
  Receipt Date: 20191101
  Transmission Date: 20200122
  Serious: No
  Sender: FDA-Public Use
  Company Number: None

PATIENT
  Age: 40 Year
  Sex: Female

DRUGS (4)
  1. IBRANCE [Suspect]
     Active Substance: PALBOCICLIB
     Route: 048
     Dates: start: 20181024, end: 20190509
  2. XGEVA [Concomitant]
     Active Substance: DENOSUMAB
  3. ZOLADEX [Concomitant]
     Active Substance: GOSERELIN ACETATE
  4. LETROZOLE. [Concomitant]
     Active Substance: LETROZOLE

REACTIONS (2)
  - Therapy change [None]
  - Disease progression [None]

NARRATIVE: CASE EVENT DATE: 20191101
